FAERS Safety Report 5780030-8 (Version None)
Quarter: 2008Q2

REPORT INFORMATION
  Report Type: 
  Country: None (occurrence: None)
  Receive Date: 20080620
  Receipt Date: 20080611
  Transmission Date: 20081010
  Serious: Yes (Hospitalization)
  Sender: FDA-Public Use
  Company Number: FR-ROCHE-570202

PATIENT
  Age: 73 Year
  Sex: Male

DRUGS (7)
  1. ROVALCYTE [Suspect]
     Indication: DRUG USE FOR UNKNOWN INDICATION
     Route: 048
  2. BACTRIM [Concomitant]
  3. BACTRIM [Concomitant]
  4. EFFEXOR [Concomitant]
  5. ANTALGIC [Concomitant]
  6. FOLIC ACID [Concomitant]
  7. CHEMOTHERAPY [Concomitant]
     Indication: LYMPHOMA

REACTIONS (1)
  - PANCREATITIS [None]
